FAERS Safety Report 25438519 (Version 1)
Quarter: 2025Q2

REPORT INFORMATION
  Report Type: Spontaneous
  Country: CN (occurrence: CN)
  Receive Date: 20250616
  Receipt Date: 20250616
  Transmission Date: 20250716
  Serious: Yes (Hospitalization)
  Sender: SANOFI AVENTIS
  Company Number: CN-SA-2025SA166176

PATIENT
  Age: 84 Year
  Sex: Female
  Weight: 58.5 kg

DRUGS (3)
  1. OXALIPLATIN [Suspect]
     Active Substance: OXALIPLATIN
     Indication: Gastric cancer
     Dosage: 100.000MG Q3W
     Route: 041
     Dates: start: 20250307, end: 20250514
  2. GIMERACIL\OTERACIL\TEGAFUR [Suspect]
     Active Substance: GIMERACIL\OTERACIL POTASSIUM\TEGAFUR
     Indication: Gastric cancer
     Dosage: 2 DF, BID
     Route: 048
     Dates: start: 20250307, end: 20250514
  3. SINTILIMAB [Suspect]
     Active Substance: SINTILIMAB
     Indication: Targeted cancer therapy
     Dosage: 200 MG, Q3W
     Route: 041
     Dates: start: 20250307, end: 20250514

REACTIONS (5)
  - Malnutrition [Recovering/Resolving]
  - Sinus bradycardia [Unknown]
  - Convalescent [Unknown]
  - Decreased appetite [Unknown]
  - Sinus arrhythmia [Unknown]

NARRATIVE: CASE EVENT DATE: 20250101
